FAERS Safety Report 15805066 (Version 2)
Quarter: 2019Q1

REPORT INFORMATION
  Report Type: Report from Study
  Country: US (occurrence: US)
  Receive Date: 20190110
  Receipt Date: 20190224
  Transmission Date: 20190417
  Serious: No
  Sender: FDA-Public Use
  Company Number: US-009507513-1812USA007158

PATIENT
  Age: 28 Year
  Sex: Female

DRUGS (1)
  1. IMPLANON [Suspect]
     Active Substance: ETONOGESTREL
     Indication: CONTRACEPTION
     Dosage: THREE YEAR INSERTION
     Route: 059
     Dates: start: 201810, end: 2018

REACTIONS (3)
  - Complication associated with device [Recovered/Resolved]
  - Device expulsion [Recovered/Resolved]
  - Keloid scar [Unknown]

NARRATIVE: CASE EVENT DATE: 201811
